FAERS Safety Report 25602514 (Version 5)
Quarter: 2025Q4

REPORT INFORMATION
  Report Type: Report from Study
  Country: US (occurrence: US)
  Receive Date: 20250724
  Receipt Date: 20251006
  Transmission Date: 20260117
  Serious: Yes (Other)
  Sender: TAKEDA
  Company Number: US-TAKEDA-2025TUS064571

PATIENT
  Age: 57 Year
  Sex: Female

DRUGS (6)
  1. MARIBAVIR [Suspect]
     Active Substance: MARIBAVIR
     Indication: Cytomegalovirus infection
     Dosage: UNK
  2. MARIBAVIR [Suspect]
     Active Substance: MARIBAVIR
     Dosage: 400 MILLIGRAM, BID
  3. GATTEX [Suspect]
     Active Substance: TEDUGLUTIDE\WATER
     Indication: Product used for unknown indication
     Dosage: UNK
  4. GATTEX [Suspect]
     Active Substance: TEDUGLUTIDE\WATER
  5. GATTEX [Suspect]
     Active Substance: TEDUGLUTIDE\WATER
  6. GATTEX [Suspect]
     Active Substance: TEDUGLUTIDE\WATER

REACTIONS (4)
  - Myelodysplastic syndrome [Unknown]
  - Off label use [Unknown]
  - Product dose omission issue [Unknown]
  - Taste disorder [Unknown]

NARRATIVE: CASE EVENT DATE: 20250716
